FAERS Safety Report 7032257-5 (Version None)
Quarter: 2010Q4

REPORT INFORMATION
  Report Type: 
  Country: None (occurrence: None)
  Receive Date: 20101007
  Receipt Date: 20100413
  Transmission Date: 20110411
  Serious: Yes (Death)
  Sender: FDA-Public Use
  Company Number: CN-BRISTOL-MYERS SQUIBB COMPANY-15064694

PATIENT
  Age: 55 Year
  Sex: Male
  Weight: 49 kg

DRUGS (2)
  1. CETUXIMAB [Suspect]
     Indication: HEAD AND NECK CANCER
     Dosage: FIRST INFUSION ON 29JUL2009; 5 MG/ML LAST INFUSION(7TH)ON 09SEP2009
     Route: 042
     Dates: start: 20090729, end: 20090909
  2. RADIATION THERAPY [Suspect]
     Indication: HEAD AND NECK CANCER
     Dosage: FIRST DOSE 1.8GY ON 05AUG09 TOTAL DOSE RECEIVED = 72GY
     Dates: start: 20090805, end: 20090915

REACTIONS (1)
  - PHARYNGEAL HAEMORRHAGE [None]
